FAERS Safety Report 9832771 (Version 5)
Quarter: 2014Q2

REPORT INFORMATION
  Report Type: Spontaneous
  Country: US (occurrence: US)
  Receive Date: 20140121
  Receipt Date: 20140508
  Transmission Date: 20141212
  Serious: Yes (Other)
  Sender: FDA-Public Use
  Company Number: US-GLAXOSMITHKLINE-A1057112A

PATIENT
  Age: 47 Year
  Sex: Female
  Weight: 106 kg

DRUGS (12)
  1. VOTRIENT [Suspect]
     Indication: METASTASES TO LARGE INTESTINE
     Dosage: 200MG TWICE PER DAY
     Route: 048
     Dates: start: 20130717
  2. LISINOPRIL [Concomitant]
  3. CELEXA [Concomitant]
  4. NEXIUM [Concomitant]
  5. PREMARIN [Concomitant]
  6. ALBUTEROL SULFATE [Concomitant]
  7. ATIVAN [Concomitant]
  8. BUPROPION [Concomitant]
  9. OMEPRAZOLE [Concomitant]
  10. ZANTAC [Concomitant]
  11. ZOFRAN [Concomitant]
  12. ZOLPIDEM TARTRATE [Concomitant]

REACTIONS (14)
  - Ascites [Unknown]
  - Vomiting [Recovered/Resolved]
  - Pain [Recovered/Resolved]
  - Furuncle [Recovered/Resolved]
  - Rash [Recovered/Resolved]
  - Nausea [Recovered/Resolved]
  - Headache [Unknown]
  - Blood pressure increased [Unknown]
  - Pharyngitis streptococcal [Unknown]
  - Body temperature increased [Unknown]
  - Abdominal pain upper [Unknown]
  - Hyponatraemia [Unknown]
  - Hepatic steatosis [Unknown]
  - Renal cyst [Unknown]
